FAERS Safety Report 10486699 (Version 1)
Quarter: 2014Q4

REPORT INFORMATION
  Report Type: Spontaneous
  Country: US (occurrence: US)
  Receive Date: 20141001
  Receipt Date: 20141001
  Transmission Date: 20150528
  Serious: Yes (Death, Life-Threatening, Hospitalization, Other)
  Sender: FDA-Public Use
  Company Number: US-009507513-1409USA014050

PATIENT
  Age: 35 Year
  Sex: Female

DRUGS (4)
  1. RITALIN [Concomitant]
     Active Substance: METHYLPHENIDATE HYDROCHLORIDE
     Indication: SEIZURE
     Dosage: UNK
  2. CYMBALTA [Concomitant]
     Active Substance: DULOXETINE HYDROCHLORIDE
  3. TEMODAR [Suspect]
     Active Substance: TEMOZOLOMIDE
     Indication: BRAIN NEOPLASM
     Dosage: UNK
     Route: 048
     Dates: start: 201406
  4. HEATHER [Concomitant]
     Active Substance: NORETHINDRONE
     Indication: CONTRACEPTION
     Dosage: UNK

REACTIONS (8)
  - Brain death [Unknown]
  - Eye movement disorder [Unknown]
  - Drug dependence [Unknown]
  - Speech disorder [Unknown]
  - Cerebrovascular accident [Unknown]
  - Vomiting [Unknown]
  - Sudden death [Fatal]
  - Adverse event [Unknown]

NARRATIVE: CASE EVENT DATE: 20140908
